FAERS Safety Report 15743667 (Version 1)
Quarter: 2018Q4

REPORT INFORMATION
  Report Type: Spontaneous
  Country: US (occurrence: US)
  Receive Date: 20181220
  Receipt Date: 20181220
  Transmission Date: 20190205
  Serious: No
  Sender: FDA-Public Use
  Company Number: US-PFIZER INC-2018016596

PATIENT
  Age: 46 Year
  Sex: Male

DRUGS (1)
  1. REVATIO [Suspect]
     Active Substance: SILDENAFIL CITRATE
     Indication: PULMONARY ARTERIAL HYPERTENSION
     Dosage: 60 MG, 3X/DAY(THREE TABS PO TID (THREE TIMES A DAY))
     Route: 048

REACTIONS (3)
  - Asthenia [Not Recovered/Not Resolved]
  - Prescribed overdose [Unknown]
  - Malaise [Unknown]
